FAERS Safety Report 6534950-7 (Version None)
Quarter: 2010Q1

REPORT INFORMATION
  Report Type: 
  Country: None (occurrence: None)
  Receive Date: 20100112
  Receipt Date: 20100105
  Transmission Date: 20100710
  Serious: Yes (Hospitalization)
  Sender: FDA-Public Use
  Company Number: US-GILEAD-2009-0025309

PATIENT
  Sex: Female
  Weight: 58.112 kg

DRUGS (27)
  1. LETAIRIS [Suspect]
     Indication: PULMONARY ARTERIAL HYPERTENSION
     Route: 048
     Dates: start: 20080523
  2. REMODULIN [Concomitant]
  3. COUMADIN [Concomitant]
  4. LASIX [Concomitant]
  5. NORVASC [Concomitant]
  6. CLONIDINE [Concomitant]
  7. OXYGEN [Concomitant]
  8. FLOVENT [Concomitant]
  9. MULTI-VITAMINS [Concomitant]
  10. PREDNISONE [Concomitant]
  11. CLARITIN [Concomitant]
  12. ZANTAC [Concomitant]
  13. AMITRIPTYLINE HCL [Concomitant]
  14. GABAPENTIN [Concomitant]
  15. KETAMINE HCL [Concomitant]
  16. KETOPROFEN [Concomitant]
  17. LECITHIN [Concomitant]
  18. LIDOCAINE [Concomitant]
  19. POLOXAMER GEL [Concomitant]
  20. SODIUM CHLORIDE [Concomitant]
  21. KLOR-CON [Concomitant]
  22. TYLENOL (CAPLET) [Concomitant]
  23. LIDODERM [Concomitant]
  24. ZOCOR [Concomitant]
  25. PROTONIX [Concomitant]
  26. ASPIRIN [Concomitant]
  27. CALCIUM 500+D [Concomitant]

REACTIONS (1)
  - GASTROINTESTINAL HAEMORRHAGE [None]
